FAERS Safety Report 5675237-4 (Version None)
Quarter: 2008Q2

REPORT INFORMATION
  Report Type: 
  Country: None (occurrence: None)
  Receive Date: 20080307
  Receipt Date: 20070305
  Transmission Date: 20081010
  Serious: Yes (Hospitalization)
  Sender: FDA-Public Use
  Company Number: T200700291

PATIENT
  Age: 36 Year
  Sex: Male
  Weight: 72.6 kg

DRUGS (1)
  1. OPTIRAY 300 [Suspect]
     Indication: COMPUTERISED TOMOGRAM THORAX
     Dosage: 150 ML, SINGLE, INTRAVENOUS
     Route: 042
     Dates: start: 20070223, end: 20070223

REACTIONS (4)
  - COUGH [None]
  - DYSPNOEA [None]
  - LARYNGOSPASM [None]
  - URTICARIA [None]
